FAERS Safety Report 9344925 (Version 4)
Quarter: 2013Q3

REPORT INFORMATION
  Report Type: Report from Study
  Country: FR (occurrence: FR)
  Receive Date: 20130612
  Receipt Date: 20130805
  Transmission Date: 20140515
  Serious: Yes (Life-Threatening, Hospitalization)
  Sender: FDA-Public Use
  Company Number: FR-INCYTE CORPORATION-2013IN001165

PATIENT
  Age: 57 Year
  Sex: Male
  Weight: 68 kg

DRUGS (25)
  1. CINC424B2301 [Suspect]
     Indication: POLYCYTHAEMIA VERA
     Dosage: 10 MG, BID
     Route: 048
     Dates: start: 20130312, end: 20130318
  2. CINC424B2301 [Suspect]
     Dosage: 5 MG, BID
     Route: 048
     Dates: start: 20130325, end: 20130405
  3. CINC424B2301 [Suspect]
     Dosage: 5 MG, BID
     Route: 048
     Dates: start: 20130413, end: 20130416
  4. CINC424B2301 [Suspect]
     Dosage: 5 MG, QD
     Route: 048
     Dates: start: 20130511, end: 20130528
  5. CINC424B2301 [Suspect]
     Dosage: 5 MG, QD
     Route: 048
     Dates: start: 20130611
  6. INEXIUM/ESOMEPRAZOLE MAGNESIUM [Concomitant]
     Dosage: UNK
     Dates: start: 20130405
  7. LOVENOX [Concomitant]
     Dosage: UNK
     Dates: start: 20130405
  8. DOXYCYCLINE [Concomitant]
     Dosage: UNK
     Dates: start: 20130411
  9. MORPHINE [Concomitant]
     Dosage: UNK
     Dates: start: 20130305, end: 20130408
  10. OXYCONTIN [Concomitant]
     Dosage: UNK
     Dates: start: 20130408
  11. OXYNORMORO [Concomitant]
     Dosage: UNK
     Dates: start: 20130408
  12. TETRAZEPAM [Concomitant]
     Dosage: UNK
     Dates: start: 20130405, end: 20130412
  13. CORTANCYL [Concomitant]
     Dosage: UNK
     Dates: start: 20121127
  14. ACETYLSALICYLATE CALCIUM [Concomitant]
     Dosage: UNK
     Dates: start: 200802
  15. ALLOPURINOL [Concomitant]
     Dosage: UNK
     Dates: start: 201003
  16. ASPEGIC [Concomitant]
     Dosage: UNK
     Dates: start: 2013
  17. DOLIPRANE [Concomitant]
     Dosage: UNK
     Dates: start: 201202
  18. IXPRIM [Concomitant]
     Dosage: UNK
     Dates: start: 20121127
  19. MOPRAL [Concomitant]
     Dosage: UNK
     Dates: start: 20121211, end: 20130404
  20. TRAMADOL [Concomitant]
     Dosage: UNK
     Dates: start: 20130325, end: 20130405
  21. HYDROCORTISONE [Concomitant]
     Dosage: UNK
     Dates: start: 20130406
  22. ACUPAN [Concomitant]
     Dosage: UNK
     Dates: start: 20130405
  23. METOCLOPRAMIDE [Concomitant]
     Dosage: UNK
     Dates: start: 20130405
  24. TRANSIPEG [Concomitant]
     Dosage: UNK
     Dates: start: 20130406
  25. NORMACOL [Concomitant]
     Dosage: UNK
     Dates: start: 20130407, end: 20130409

REACTIONS (1)
  - Myocardial infarction [Recovered/Resolved with Sequelae]
